FAERS Safety Report 9168923 (Version 1)
Quarter: 2013Q1

REPORT INFORMATION
  Report Type: Spontaneous
  Country: BR (occurrence: BR)
  Receive Date: 20130318
  Receipt Date: 20130318
  Transmission Date: 20140127
  Serious: Yes (Other)
  Sender: FDA-Public Use
  Company Number: BR-PFIZER INC-2013086171

PATIENT
  Age: 85 Year
  Sex: Male

DRUGS (2)
  1. LYRICA [Suspect]
     Indication: PAIN
     Dosage: 75 MG, 1 TABLET ONCE A DAY
     Route: 048
     Dates: start: 2011
  2. LYRICA [Suspect]
     Indication: DEPRESSION

REACTIONS (2)
  - Mood altered [Unknown]
  - Urinary incontinence [Unknown]
